FAERS Safety Report 10857002 (Version 1)
Quarter: 2015Q1

REPORT INFORMATION
  Report Type: Spontaneous
  Country: US (occurrence: US)
  Receive Date: 20150223
  Receipt Date: 20150223
  Transmission Date: 20150721
  Serious: No
  Sender: FDA-Public Use
  Company Number: US-BAYER-2015-026666

PATIENT
  Age: 38 Year
  Sex: Female
  Weight: 51.25 kg

DRUGS (2)
  1. METHOTREXATE [Concomitant]
     Active Substance: METHOTREXATE
     Dosage: UNK
  2. ALEVE [Suspect]
     Active Substance: NAPROXEN SODIUM
     Indication: ARTHRALGIA
     Dosage: 1-2 DF, ALMOST EVERYDAY
     Route: 048
     Dates: start: 2014

REACTIONS (2)
  - Incorrect drug administration duration [None]
  - Medication error [None]

NARRATIVE: CASE EVENT DATE: 2014
